FAERS Safety Report 10210817 (Version 3)
Quarter: 2014Q4

REPORT INFORMATION
  Report Type: Spontaneous
  Country: US (occurrence: US)
  Receive Date: 20140602
  Receipt Date: 20141024
  Transmission Date: 20150528
  Serious: Yes (Hospitalization)
  Sender: FDA-Public Use
  Company Number: US-BAYER-2014-079470

PATIENT
  Age: 38 Year
  Sex: Female
  Weight: 72.56 kg

DRUGS (3)
  1. NASONEX [Concomitant]
     Active Substance: MOMETASONE FUROATE
     Indication: MULTIPLE ALLERGIES
     Dosage: UNK
     Dates: start: 2009
  2. ASTEPRO [Concomitant]
     Active Substance: AZELASTINE HYDROCHLORIDE
     Indication: MULTIPLE ALLERGIES
     Dosage: UNK
     Dates: start: 2009
  3. MIRENA [Suspect]
     Active Substance: LEVONORGESTREL
     Indication: CONTRACEPTION
     Dosage: 20 MCG/24HR, CONT
     Route: 015
     Dates: start: 20100302, end: 20121130

REACTIONS (11)
  - Pain [None]
  - Emotional distress [None]
  - Device dislocation [None]
  - Back pain [None]
  - Abdominal pain [None]
  - Scar [None]
  - Quality of life decreased [None]
  - Uterine perforation [None]
  - Injury [None]
  - Device difficult to use [None]
  - Flank pain [None]

NARRATIVE: CASE EVENT DATE: 2012
